FAERS Safety Report 9542641 (Version 1)
Quarter: 2013Q3

REPORT INFORMATION
  Report Type: Spontaneous
  Country: US (occurrence: US)
  Receive Date: 20130923
  Receipt Date: 20130923
  Transmission Date: 20140515
  Serious: No
  Sender: FDA-Public Use
  Company Number: US-PFIZER INC-2013269966

PATIENT
  Age: 66 Year
  Sex: Female
  Weight: 58.96 kg

DRUGS (3)
  1. LIPITOR [Suspect]
     Dosage: 40 MG, DAILY
  2. BABY ASPIRIN [Concomitant]
     Dosage: UNK
  3. METOPROLOL TARTRATE [Concomitant]
     Indication: BLOOD PRESSURE ABNORMAL
     Dosage: SPLITTING THE 25 MG TABLETS IN HALVES), TWO TIME A DAY

REACTIONS (2)
  - Nasopharyngitis [Not Recovered/Not Resolved]
  - Immune system disorder [Unknown]
